FAERS Safety Report 25943842 (Version 2)
Quarter: 2025Q4

REPORT INFORMATION
  Report Type: Report from Study
  Country: CO (occurrence: CO)
  Receive Date: 20251021
  Receipt Date: 20251029
  Transmission Date: 20260117
  Serious: Yes (Hospitalization, Other)
  Sender: AMGEN
  Company Number: CO-AMGEN-COLSL2024074964

PATIENT
  Age: 36 Year
  Sex: Male

DRUGS (2)
  1. VECTIBIX [Suspect]
     Active Substance: PANITUMUMAB
     Indication: Colorectal cancer metastatic
     Dosage: 400 MILLIGRAM, Q2WK
     Route: 042
     Dates: start: 20240219, end: 20241202
  2. VECTIBIX [Suspect]
     Active Substance: PANITUMUMAB
     Dosage: 510 MILLIGRAM, Q2WK
     Route: 042
     Dates: start: 20250729

REACTIONS (7)
  - Carcinoembryonic antigen increased [Unknown]
  - Pain in extremity [Recovering/Resolving]
  - Knee operation [Recovering/Resolving]
  - Skin burning sensation [Not Recovered/Not Resolved]
  - Rash [Not Recovered/Not Resolved]
  - Mucosal inflammation [Not Recovered/Not Resolved]
  - Nail disorder [Not Recovered/Not Resolved]

NARRATIVE: CASE EVENT DATE: 20240101
